FAERS Safety Report 4690607-9 (Version None)
Quarter: 2005Q2

REPORT INFORMATION
  Report Type: 
  Country: None (occurrence: None)
  Receive Date: 20050615
  Receipt Date: 20040617
  Transmission Date: 20051028
  Serious: Yes (Other)
  Sender: FDA-Public Use
  Company Number: 200416122GDDC

PATIENT
  Age: 61 Year
  Sex: Male

DRUGS (9)
  1. DOCETAXEL [Suspect]
     Indication: NEOPLASM MALIGNANT
     Route: 042
     Dates: start: 20031020
  2. CISPLATIN [Suspect]
     Indication: NEOPLASM MALIGNANT
     Route: 042
     Dates: start: 20031020
  3. FLUOROURACIL [Suspect]
     Indication: NEOPLASM MALIGNANT
     Route: 042
     Dates: start: 20031020
  4. CARBOPLATIN [Suspect]
     Indication: NEOPLASM MALIGNANT
     Dosage: DOSE: AUC=1.5
     Dates: start: 20040106, end: 20040218
  5. MORPHINE [Concomitant]
     Route: 048
  6. LIDOCAINE [Concomitant]
     Dosage: DOSE: MOUTHWASH
  7. ALUMINUMHYDROXIDE [Concomitant]
     Dosage: DOSE: MOUTHWASH
  8. NYSTATIN [Concomitant]
     Dosage: DOSE: MOUTHWASH
  9. DIPHENHYDRAMINE HCL [Concomitant]
     Dosage: DOSE: MOUTHWASH

REACTIONS (5)
  - MYELODYSPLASTIC SYNDROME [None]
  - ODYNOPHAGIA [None]
  - PNEUMONIA ASPIRATION [None]
  - RENAL FAILURE [None]
  - SEPSIS [None]
